FAERS Safety Report 7627026-9 (Version None)
Quarter: 2011Q3

REPORT INFORMATION
  Report Type: 
  Country: None (occurrence: None)
  Receive Date: 20110721
  Receipt Date: 20110505
  Transmission Date: 20111222
  Serious: No
  Sender: FDA-Public Use
  Company Number: US-BAYER-2011-041005

PATIENT
  Sex: Female
  Weight: 107 kg

DRUGS (5)
  1. METFORMIN HYDROCHLORIDE [Concomitant]
  2. AMLODIPINE [Concomitant]
  3. ALEVE (CAPLET) [Suspect]
     Indication: PAIN
     Dosage: CONSUMER HAS TAKEN PRODUCT LONGER THAN 10 DAYS. BOTTLE COUNT 200CT
     Route: 048
  4. SYNTHROID [Concomitant]
  5. GLIMEPIRIDE [Concomitant]

REACTIONS (1)
  - PAIN [None]
